FAERS Safety Report 11360527 (Version 1)
Quarter: 2015Q3

REPORT INFORMATION
  Report Type: Report from Study
  Country: US (occurrence: US)
  Receive Date: 20150810
  Receipt Date: 20150810
  Transmission Date: 20151125
  Serious: No
  Sender: FDA-Public Use
  Company Number: PHEH2014US021193

PATIENT
  Age: 27 Year
  Sex: Female

DRUGS (5)
  1. EXTAVIA [Suspect]
     Active Substance: INTERFERON BETA-1B
     Dosage: 0.5 ML, QOD (0.125 MG) FOR ON MONTH
     Route: 058
     Dates: start: 20141016
  2. EXTAVIA [Suspect]
     Active Substance: INTERFERON BETA-1B
     Dosage: 1 ML, QOD (0.25 MG) 7 PLUS WEEKS
     Route: 058
  3. EXTAVIA [Suspect]
     Active Substance: INTERFERON BETA-1B
     Indication: MULTIPLE SCLEROSIS
     Dosage: 0.25 ML, QOD (0.0625 MG) 1 TO 2 WEEK
     Route: 058
  4. EXTAVIA [Suspect]
     Active Substance: INTERFERON BETA-1B
     Dosage: 0.75 ML, QOD (0.1875 MG)
     Route: 058
  5. EXTAVIA [Suspect]
     Active Substance: INTERFERON BETA-1B
     Dosage: 0.5 ML FOR 1 MONTH, (1ML QOD)
     Route: 058
     Dates: start: 20141020

REACTIONS (5)
  - Headache [Not Recovered/Not Resolved]
  - Tremor [Recovered/Resolved]
  - Chills [Not Recovered/Not Resolved]
  - Hepatic enzyme increased [Unknown]
  - Ear infection [Unknown]

NARRATIVE: CASE EVENT DATE: 20141016
